FAERS Safety Report 8464067-6 (Version None)
Quarter: 2012Q2

REPORT INFORMATION
  Report Type: 
  Country: None (occurrence: None)
  Receive Date: 20120625
  Receipt Date: 20120613
  Transmission Date: 20120825
  Serious: Yes (Other)
  Sender: FDA-Public Use
  Company Number: US-ROCHE-768658

PATIENT
  Sex: Female
  Weight: 70.9 kg

DRUGS (8)
  1. ACETAMINOPHEN [Concomitant]
     Dosage: PRN
  2. FERROUS SULFATE TAB [Concomitant]
  3. METHOTREXATE [Suspect]
     Indication: RHEUMATOID ARTHRITIS
     Dosage: LAST DOSE PRIOR TO THE SAE ON 16/MAR/2011
     Route: 048
     Dates: start: 20100303, end: 20110607
  4. ACTEMRA [Suspect]
     Indication: RHEUMATOID ARTHRITIS
     Dosage: LAST DOSE PRIOR TO THE SAE ON 02/MAR/2011
     Route: 042
     Dates: start: 20100303, end: 20110607
  5. BLINDED DICLOFENAC [Suspect]
     Indication: PRODUCT USED FOR UNKNOWN INDICATION
     Route: 065
  6. FOLIC ACID [Suspect]
     Indication: RHEUMATOID ARTHRITIS
     Dosage: FREQUENCY DAILY.
     Route: 048
  7. PREDNISONE [Concomitant]
     Dates: start: 20090915
  8. LISINOPRIL [Concomitant]

REACTIONS (1)
  - COLITIS [None]
